FAERS Safety Report 19074752 (Version 1)
Quarter: 2021Q1

REPORT INFORMATION
  Report Type: Spontaneous
  Country: DE (occurrence: DE)
  Receive Date: 20210330
  Receipt Date: 20210330
  Transmission Date: 20210420
  Serious: Yes (Hospitalization, Disabling)
  Sender: FDA-Public Use
  Company Number: DE-BIOGEN-2021BI00994583

PATIENT
  Age: 51 Year
  Sex: Female

DRUGS (1)
  1. TYSABRI [Suspect]
     Active Substance: NATALIZUMAB
     Indication: MULTIPLE SCLEROSIS
     Route: 042
     Dates: start: 2010, end: 201902

REACTIONS (2)
  - Multiple sclerosis relapse [Not Recovered/Not Resolved]
  - Noninfective encephalitis [Recovered/Resolved with Sequelae]

NARRATIVE: CASE EVENT DATE: 201902
